FAERS Safety Report 4538113-6 (Version None)
Quarter: 2004Q4

REPORT INFORMATION
  Report Type: 
  Country: None (occurrence: None)
  Receive Date: 20041221
  Receipt Date: 20041208
  Transmission Date: 20050328
  Serious: Yes (Other)
  Sender: FDA-Public Use
  Company Number: 2004111442

PATIENT
  Age: 33 Year
  Sex: Male

DRUGS (18)
  1. DOXORUBICIN HCL [Suspect]
     Indication: NON-HODGKIN'S LYMPHOMA
     Dosage: (CYCLICAL)
     Dates: start: 19880301, end: 19890301
  2. PREDNISOLONE [Suspect]
     Indication: NON-HODGKIN'S LYMPHOMA
     Dosage: (CYCLICAL)
     Dates: start: 19880301, end: 19930101
  3. ETOPOSIDE [Suspect]
     Indication: NON-HODGKIN'S LYMPHOMA
     Dosage: (CYCLICAL)
     Dates: start: 19880301, end: 19960401
  4. VINCRISTINE [Suspect]
     Indication: NON-HODGKIN'S LYMPHOMA
     Dosage: (CYCLICAL)
     Dates: start: 19880301, end: 19930101
  5. BLEOMYCIN [Suspect]
     Indication: NON-HODGKIN'S LYMPHOMA
     Dosage: (CYCLICAL)
     Dates: start: 19880301, end: 19890301
  6. CYCLOPHOSPHAMIDE [Suspect]
     Indication: NON-HODGKIN'S LYMPHOMA
     Dosage: (CYCLICAL)
     Dates: start: 19880301, end: 19940801
  7. METHOTREXATE [Suspect]
     Indication: NON-HODGKIN'S LYMPHOMA
     Dosage: (CYCLICAL)
     Dates: start: 19880301, end: 19980907
  8. VINDESINE (VINDESINE) [Suspect]
     Indication: NON-HODGKIN'S LYMPHOMA
     Dosage: (CYCLICAL)
     Dates: start: 19880301, end: 19910101
  9. PROCARBAZINE (PROCARBAZINE) [Suspect]
     Indication: NON-HODGKIN'S LYMPHOMA
     Dosage: (CYCLICAL)
     Dates: start: 19880301, end: 19930101
  10. NIMUSTINE HYDROCHLORIDE (NIMUSTINE HYDROCHLORIDE) [Suspect]
     Indication: NON-HODGKIN'S LYMPHOMA
     Dosage: (CYCLICAL)
     Dates: start: 19900801, end: 19910101
  11. PIRARUBUCIN (PIRARUBICIN) [Suspect]
     Indication: NON-HODGKIN'S LYMPHOMA
     Dosage: (CYCLICAL)
     Dates: start: 19900801, end: 19910101
  12. IFOSFAMIDE [Suspect]
     Indication: NON-HODGKIN'S LYMPHOMA
     Dosage: (CYCLICAL)
     Dates: start: 19910101, end: 19930401
  13. CARBOPLATIN [Suspect]
     Indication: NON-HODGKIN'S LYMPHOMA
     Dosage: (CYCLICAL)
     Dates: start: 19930101, end: 19930401
  14. MITOXANTRONE [Suspect]
     Indication: NON-HODGKIN'S LYMPHOMA
     Dosage: (CYCLICAL)
     Dates: start: 19940301, end: 19940801
  15. CYTARABINE [Suspect]
     Indication: NON-HODGKIN'S LYMPHOMA
     Dosage: (CYCLICAL)
     Dates: start: 19940301, end: 19940801
  16. MELPHALAN (MELPHALAN) [Suspect]
     Indication: NON-HODGKIN'S LYMPHOMA
     Dosage: (CYCLICAL)
     Dates: start: 19940301, end: 19940801
  17. RITUXIMAB (RITUXIMAB) [Suspect]
     Indication: NON-HODGKIN'S LYMPHOMA
     Dosage: (CYCLICAL)
     Dates: start: 19960605, end: 19970916
  18. CLADRIBINE [Suspect]
     Indication: NON-HODGKIN'S LYMPHOMA
     Dosage: (CYCLICAL)
     Dates: start: 19981016, end: 19981123

REACTIONS (1)
  - MYELODYSPLASTIC SYNDROME [None]
